FAERS Safety Report 8476576-4 (Version None)
Quarter: 2012Q2

REPORT INFORMATION
  Report Type: 
  Country: None (occurrence: None)
  Receive Date: 20120628
  Receipt Date: 20120625
  Transmission Date: 20120825
  Serious: Yes (Death, Other)
  Sender: FDA-Public Use
  Company Number: US-US-EMD SERONO, INC.-7025894

PATIENT
  Sex: Male

DRUGS (4)
  1. SEROSTIM [Suspect]
     Indication: HIV WASTING SYNDROME
     Dates: start: 20080812
  2. ANTIVIRAL MEDICATIONS [Concomitant]
     Indication: HIV INFECTION
  3. SEROSTIM [Suspect]
     Dates: start: 20101011, end: 20101102
  4. ATENOLOL [Concomitant]
     Indication: HYPERTENSION

REACTIONS (4)
  - DIARRHOEA [None]
  - POLYCYTHAEMIA [None]
  - STREPTOCOCCAL INFECTION [None]
  - DEATH [None]
